FAERS Safety Report 13352205 (Version 1)
Quarter: 2017Q1

REPORT INFORMATION
  Report Type: Spontaneous
  Country: US (occurrence: US)
  Receive Date: 20170320
  Receipt Date: 20170320
  Transmission Date: 20170429
  Serious: No
  Sender: FDA-Public Use
  Company Number: US-SA-2016SA088048

PATIENT
  Age: 61 Year
  Sex: Male

DRUGS (1)
  1. NASACORT ALLERGY 24HR [Suspect]
     Active Substance: TRIAMCINOLONE ACETONIDE
     Indication: MULTIPLE ALLERGIES
     Dosage: DOSE:55 MCG (2 SPRAYS EACH DAILY).?STOP DATE: ABOUT A WEEK AGO.
     Route: 065
     Dates: start: 20160415

REACTIONS (2)
  - Oropharyngeal pain [Unknown]
  - Nasal congestion [Unknown]
